FAERS Safety Report 25478438 (Version 1)
Quarter: 2025Q2

REPORT INFORMATION
  Report Type: Spontaneous
  Country: CA (occurrence: CA)
  Receive Date: 20250625
  Receipt Date: 20250625
  Transmission Date: 20250717
  Serious: Yes (Other)
  Sender: TEVA
  Company Number: CA-TEVA-VS-3343570

PATIENT
  Age: 66 Year
  Sex: Female

DRUGS (2)
  1. CIPROFLOXACIN [Suspect]
     Active Substance: CIPROFLOXACIN
     Indication: Product used for unknown indication
     Route: 048
  2. METHYLPREDNISOLONE ACETATE [Suspect]
     Active Substance: METHYLPREDNISOLONE ACETATE
     Indication: Product used for unknown indication
     Route: 065

REACTIONS (8)
  - Dysphagia [Recovering/Resolving]
  - Pyrexia [Recovering/Resolving]
  - Genital ulceration [Recovering/Resolving]
  - Stevens-Johnson syndrome [Recovering/Resolving]
  - Odynophagia [Recovering/Resolving]
  - Rash [Recovering/Resolving]
  - Dysuria [Recovering/Resolving]
  - Hiccups [Recovering/Resolving]
